FAERS Safety Report 5571265-8 (Version None)
Quarter: 2007Q4

REPORT INFORMATION
  Report Type: 
  Country: None (occurrence: None)
  Receive Date: 20071221
  Receipt Date: 20070406
  Transmission Date: 20080405
  Serious: No
  Sender: FDA-Public Use
  Company Number: A0646182A

PATIENT
  Age: 46 Year
  Sex: Male

DRUGS (2)
  1. FLONASE [Suspect]
     Dosage: 2PUFF PER DAY
     Route: 045
     Dates: start: 20070405
  2. CLARITIN [Concomitant]

REACTIONS (1)
  - DRUG INEFFECTIVE [None]
